FAERS Safety Report 9048372 (Version 1)
Quarter: 2013Q1

REPORT INFORMATION
  Report Type: Spontaneous
  Country: US (occurrence: None)
  Receive Date: 20130130
  Receipt Date: 20130130
  Transmission Date: 20140127
  Serious: No
  Sender: FDA-Public Use
  Company Number: None

PATIENT
  Age: 73 Year
  Sex: Male
  Weight: 98.6 kg

DRUGS (2)
  1. CLOBETASOL [Suspect]
     Dates: start: 20130102, end: 20130115
  2. CLOBETASOL [Suspect]
     Dates: start: 20130102, end: 20130115

REACTIONS (2)
  - Dizziness [None]
  - Asthenia [None]
